APPROVED DRUG PRODUCT: CHOLESTYRAMINE
Active Ingredient: CHOLESTYRAMINE
Strength: EQ 4GM RESIN/PACKET
Dosage Form/Route: POWDER;ORAL
Application: A214877 | Product #001
Applicant: AIPING PHARMACEUTICAL INC
Approved: Jan 21, 2022 | RLD: No | RS: No | Type: DISCN